FAERS Safety Report 21526467 (Version 4)
Quarter: 2025Q1

REPORT INFORMATION
  Report Type: Spontaneous
  Country: US (occurrence: US)
  Receive Date: 20221031
  Receipt Date: 20250227
  Transmission Date: 20250408
  Serious: No
  Sender: UCB
  Company Number: US-UCBSA-2022041170

PATIENT
  Age: 20 Year
  Sex: Female

DRUGS (4)
  1. LEVETIRACETAM [Suspect]
     Active Substance: LEVETIRACETAM
     Indication: Seizure
  2. VIMPAT [Suspect]
     Active Substance: LACOSAMIDE
     Indication: Seizure
  3. LAMOTRIGINE [Suspect]
     Active Substance: LAMOTRIGINE
     Indication: Seizure
  4. VALPROATE [Suspect]
     Active Substance: VALPROIC ACID
     Indication: Seizure

REACTIONS (1)
  - Multiple-drug resistance [Unknown]
